FAERS Safety Report 6064493-9 (Version None)
Quarter: 2009Q1

REPORT INFORMATION
  Report Type: 
  Country: None (occurrence: None)
  Receive Date: 20090203
  Receipt Date: 20090203
  Transmission Date: 20090719
  Serious: Yes (Other)
  Sender: FDA-Public Use
  Company Number: None

PATIENT
  Age: 74 Year
  Sex: Female
  Weight: 68.18 kg

DRUGS (12)
  1. GENTAMICIN [Suspect]
     Indication: KLEBSIELLA INFECTION
     Dosage: 300 MG Q24H IV
     Route: 042
     Dates: start: 20090201, end: 20090201
  2. GENTAMICIN [Suspect]
     Indication: NEUTROPENIA
     Dosage: 300 MG Q24H IV
     Route: 042
     Dates: start: 20090201, end: 20090201
  3. GENTAMICIN [Suspect]
     Indication: SPUTUM CULTURE POSITIVE
     Dosage: 300 MG Q24H IV
     Route: 042
     Dates: start: 20090201, end: 20090201
  4. CASPOFUNGIN [Concomitant]
  5. FUROSEMIDE [Concomitant]
  6. PANTOPRAZOLE [Concomitant]
  7. PIPERACILLIN AND TAZOBACTAM [Concomitant]
  8. POTASSIUM CHLORIDE [Concomitant]
  9. ACYCLOVIR [Concomitant]
  10. VANCOMYCIN HCL [Concomitant]
  11. FILGRASTIM [Concomitant]
  12. IMIPENEM AND CILASTATIN SODIUM [Concomitant]

REACTIONS (5)
  - ARTHRALGIA [None]
  - BONE PAIN [None]
  - HALLUCINATION [None]
  - INFUSION RELATED REACTION [None]
  - PYREXIA [None]
